FAERS Safety Report 8949653 (Version 2)
Quarter: 2012Q4

REPORT INFORMATION
  Report Type: 
  Country: US (occurrence: US)
  Receive Date: 20121206
  Receipt Date: 20121226
  Transmission Date: 20130627
  Serious: Yes (Other)
  Sender: FDA-Public Use
  Company Number: US-BAYER-2012-126138

PATIENT
  Age: 30 Year
  Sex: Female

DRUGS (4)
  1. MIRENA [Suspect]
     Indication: CONTRACEPTION
     Dosage: 20 mcg/24hr, CONT
     Route: 015
     Dates: start: 201205, end: 201210
  2. PROZAC [Concomitant]
  3. MULTIVITAMIN [Concomitant]
  4. BETADINE [Concomitant]

REACTIONS (6)
  - Genital haemorrhage [None]
  - Coital bleeding [None]
  - Abdominal pain lower [None]
  - Abdominal discomfort [None]
  - Vaginal infection [None]
  - Menorrhagia [None]
